FAERS Safety Report 10265883 (Version 1)
Quarter: 2014Q2

REPORT INFORMATION
  Report Type: Spontaneous
  Country: CA (occurrence: CA)
  Receive Date: 20140627
  Receipt Date: 20140627
  Transmission Date: 20141212
  Serious: Yes (Hospitalization)
  Sender: FDA-Public Use
  Company Number: CA-ALLERGAN-1413900US

PATIENT
  Age: 72 Year
  Sex: Male

DRUGS (1)
  1. BOTOX [Suspect]
     Indication: HYPERTONIC BLADDER
     Dosage: UNK, SINGLE
     Route: 043
     Dates: start: 20140414, end: 20140414

REACTIONS (9)
  - Guillain-Barre syndrome [Unknown]
  - Pain [Not Recovered/Not Resolved]
  - Malaise [Unknown]
  - Abasia [Unknown]
  - Asthenia [Unknown]
  - Paraesthesia [Not Recovered/Not Resolved]
  - Muscular weakness [Not Recovered/Not Resolved]
  - Pneumonia [Unknown]
  - Dysuria [Unknown]
